FAERS Safety Report 6861276-4 (Version None)
Quarter: 2010Q3

REPORT INFORMATION
  Report Type: 
  Country: None (occurrence: None)
  Receive Date: 20100720
  Receipt Date: 20100715
  Transmission Date: 20110219
  Serious: Yes (Other)
  Sender: FDA-Public Use
  Company Number: IT-TYCO HEALTHCARE/MALLINCKRODT-T201001626

PATIENT
  Sex: Female

DRUGS (7)
  1. EXALGO [Suspect]
     Indication: PAIN
     Dosage: 16 MG, QD
     Route: 048
     Dates: start: 20100104, end: 20100422
  2. FENTORA [Suspect]
     Indication: PAIN
     Dosage: 100 UG,  2 DAILY
     Dates: start: 20100403, end: 20100422
  3. FAMCICLOVIR [Concomitant]
     Dosage: UNK
  4. AUGMENTIN '125' [Concomitant]
     Dosage: UNK
  5. KESTINE [Concomitant]
     Dosage: UNK
  6. AMITRIPTYLINE HCL [Concomitant]
     Dosage: UNK
  7. OXYCONTIN [Concomitant]
     Dosage: UNK

REACTIONS (1)
  - DERMATITIS EXFOLIATIVE [None]
